FAERS Safety Report 14101886 (Version 1)
Quarter: 2017Q4

REPORT INFORMATION
  Report Type: Report from Study
  Country: AU (occurrence: AU)
  Receive Date: 20171018
  Receipt Date: 20171018
  Transmission Date: 20180321
  Serious: Yes (Hospitalization, Other)
  Sender: FDA-Public Use
  Company Number: AU-ROCHE-1950963

PATIENT
  Age: 73 Year
  Sex: Female
  Weight: 112 kg

DRUGS (3)
  1. ACTEMRA [Suspect]
     Active Substance: TOCILIZUMAB
     Indication: RHEUMATOID ARTHRITIS
     Dosage: ONGOING
     Route: 042
     Dates: start: 20100325
  2. ELIQUIS [Concomitant]
     Active Substance: APIXABAN
     Route: 065
  3. TWYNSTA [Concomitant]
     Active Substance: AMLODIPINE BESYLATE\TELMISARTAN
     Route: 065

REACTIONS (10)
  - Vaginal haemorrhage [Not Recovered/Not Resolved]
  - Sinus node dysfunction [Recovered/Resolved]
  - Hypertension [Unknown]
  - Gout [Unknown]
  - Rash [Unknown]
  - Uterine enlargement [Unknown]
  - Nephrolithiasis [Unknown]
  - Atrial flutter [Unknown]
  - Arthritis [Unknown]
  - Urosepsis [Not Recovered/Not Resolved]

NARRATIVE: CASE EVENT DATE: 20131008
